FAERS Safety Report 5570276-6 (Version None)
Quarter: 2007Q4

REPORT INFORMATION
  Report Type: 
  Country: None (occurrence: None)
  Receive Date: 20071219
  Receipt Date: 20071219
  Transmission Date: 20080405
  Serious: Yes (Other)
  Sender: FDA-Public Use
  Company Number: None

PATIENT
  Sex: Male
  Weight: 138.3471 kg

DRUGS (1)
  1. CHANTIX [Suspect]
     Dosage: 1MG 2X DAILY
     Dates: start: 20070801, end: 20071129

REACTIONS (3)
  - ACTIVITIES OF DAILY LIVING IMPAIRED [None]
  - FEELING ABNORMAL [None]
  - STUPOR [None]
